FAERS Safety Report 20982894 (Version 1)
Quarter: 2022Q2

REPORT INFORMATION
  Report Type: Spontaneous
  Country: PT (occurrence: PT)
  Receive Date: 20220620
  Receipt Date: 20220620
  Transmission Date: 20220721
  Serious: Yes (Other)
  Sender: FDA-Public Use
  Company Number: None

PATIENT

DRUGS (4)
  1. EDARBYCLOR [Suspect]
     Active Substance: AZILSARTAN KAMEDOXOMIL\CHLORTHALIDONE
     Indication: Hypertension
     Dosage: UNK UNK, QD
     Route: 048
     Dates: start: 20220215
  2. MIDAZOLAM MALEATE [Suspect]
     Active Substance: MIDAZOLAM MALEATE
     Indication: Insomnia
     Dosage: UNK
     Route: 065
  3. PAROXETINE HYDROCHLORIDE [Suspect]
     Active Substance: PAROXETINE HYDROCHLORIDE
     Indication: Depression
     Dosage: 40 MILLIGRAM, QD
     Route: 048
     Dates: start: 20220216
  4. MIRTAZAPINE [Suspect]
     Active Substance: MIRTAZAPINE
     Indication: Insomnia
     Dosage: 30 MILLIGRAM, QD
     Route: 048
     Dates: start: 20220228, end: 20220301

REACTIONS (3)
  - Decreased appetite [Unknown]
  - Somnolence [Recovered/Resolved]
  - Blood pressure abnormal [Unknown]

NARRATIVE: CASE EVENT DATE: 20220216
